FAERS Safety Report 8093407-5 (Version None)
Quarter: 2012Q1

REPORT INFORMATION
  Report Type: 
  Country: None (occurrence: None)
  Receive Date: 20120131
  Receipt Date: 20120123
  Transmission Date: 20120608
  Serious: No
  Sender: FDA-Public Use
  Company Number: US-B.I. PHARMACEUTICALS,INC./RIDGEFIELD-2011-BP-27966BP

PATIENT
  Sex: Male

DRUGS (9)
  1. GLYBURIDE [Concomitant]
     Indication: DIABETES MELLITUS
  2. METFORMIN HCL [Concomitant]
     Indication: DIABETES MELLITUS
  3. FLOMAX [Suspect]
     Indication: PROSTATOMEGALY
     Dosage: 0.4 MG
     Route: 048
  4. LIPITOR [Concomitant]
     Indication: BLOOD CHOLESTEROL INCREASED
  5. ZETIA [Concomitant]
     Indication: BLOOD CHOLESTEROL INCREASED
  6. ACTOS [Concomitant]
     Indication: DIABETES MELLITUS
  7. METOPROLOL TARTRATE [Concomitant]
     Indication: HYPERTENSION
  8. SINGULAIR [Concomitant]
     Indication: CHRONIC OBSTRUCTIVE PULMONARY DISEASE
  9. LOSARTAN POTASSIUM AND HYDROCHLOROTHIAZIDE [Concomitant]
     Indication: HYPERTENSION

REACTIONS (2)
  - POLLAKIURIA [None]
  - URINE FLOW DECREASED [None]
